FAERS Safety Report 9310262 (Version 1)
Quarter: 2013Q2

REPORT INFORMATION
  Report Type: Report from Study
  Country: AR (occurrence: AR)
  Receive Date: 20130527
  Receipt Date: 20130527
  Transmission Date: 20140414
  Serious: Yes (Hospitalization)
  Sender: FDA-Public Use
  Company Number: PHHY2013AR051712

PATIENT
  Sex: Female

DRUGS (1)
  1. EXFORGE [Suspect]
     Indication: HYPERTENSION
     Dosage: 1 DF(160/10 MG), DAILY
     Route: 048

REACTIONS (3)
  - Thrombosis [Recovering/Resolving]
  - Lacrimation increased [Unknown]
  - Pain in extremity [Unknown]
